FAERS Safety Report 13335822 (Version 1)
Quarter: 2017Q1

REPORT INFORMATION
  Report Type: Spontaneous
  Country: US (occurrence: US)
  Receive Date: 20170314
  Receipt Date: 20170314
  Transmission Date: 20170428
  Serious: No
  Sender: FDA-Public Use
  Company Number: GXBR2017US000574

PATIENT
  Age: 6 Year
  Sex: Female

DRUGS (1)
  1. AMOXICILLIN+CLAVULANATE [Suspect]
     Active Substance: AMOXICILLIN\CLAVULANATE POTASSIUM
     Indication: BACTERIAL INFECTION
     Dosage: 7.5 ML, ONCE/SINGLE
     Route: 048
     Dates: start: 20160122, end: 20160122

REACTIONS (2)
  - Abdominal pain upper [Recovered/Resolved]
  - Vomiting [Recovered/Resolved]

NARRATIVE: CASE EVENT DATE: 20170122
